FAERS Safety Report 9431976 (Version 1)
Quarter: 2013Q3

REPORT INFORMATION
  Report Type: Spontaneous
  Country: FR (occurrence: FR)
  Receive Date: 20130731
  Receipt Date: 20130731
  Transmission Date: 20140515
  Serious: Yes (Death, Hospitalization)
  Sender: FDA-Public Use
  Company Number: FR-JNJFOC-20130715568

PATIENT
  Age: 79 Year
  Sex: Male

DRUGS (2)
  1. XARELTO [Suspect]
     Indication: ATRIAL FIBRILLATION
     Route: 048
     Dates: start: 20130319, end: 20130615
  2. KEPPRA [Concomitant]
     Indication: EPILEPSY
     Route: 065
     Dates: start: 201206

REACTIONS (3)
  - Cerebral haematoma [Fatal]
  - Renal failure acute [Fatal]
  - Urinary bladder haemorrhage [Fatal]
